FAERS Safety Report 7461681-1 (Version None)
Quarter: 2011Q2

REPORT INFORMATION
  Report Type: 
  Country: None (occurrence: None)
  Receive Date: 20110506
  Receipt Date: 20110428
  Transmission Date: 20111010
  Serious: Yes (Hospitalization)
  Sender: FDA-Public Use
  Company Number: US-ASTELLAS-2011US001439

PATIENT
  Sex: Male

DRUGS (15)
  1. LANTUS [Concomitant]
     Indication: DIABETES MELLITUS
     Dosage: 35 U, BID
     Route: 065
  2. SIMVASTATIN [Concomitant]
     Indication: HYPERLIPIDAEMIA
     Dosage: 80 MG, UID/QD
     Route: 065
  3. TRILIPIX [Concomitant]
     Indication: PRODUCT USED FOR UNKNOWN INDICATION
     Dosage: 135 MG, UID/QD
     Route: 065
  4. AMEVIVE [Suspect]
     Indication: PSORIASIS
     Dosage: UNK
     Route: 030
     Dates: end: 20101001
  5. FINASTERIDE [Concomitant]
     Indication: PRODUCT USED FOR UNKNOWN INDICATION
     Dosage: 5 MG, UID/QD
     Route: 065
  6. OMEPRAZOLE [Concomitant]
     Indication: PRODUCT USED FOR UNKNOWN INDICATION
     Dosage: 20 MG, UID/QD
     Route: 065
  7. SPIRIVA [Concomitant]
     Indication: CHRONIC OBSTRUCTIVE PULMONARY DISEASE
     Dosage: 18 UG, UID/QD
     Route: 065
  8. DILTIAZEM [Concomitant]
     Indication: PRODUCT USED FOR UNKNOWN INDICATION
     Dosage: 360 MG, UID/QD
     Route: 065
  9. LEXAPRO [Concomitant]
     Indication: PRODUCT USED FOR UNKNOWN INDICATION
     Dosage: 20 MG, UID/QD
     Route: 065
  10. ATENOLOL [Concomitant]
     Indication: PRODUCT USED FOR UNKNOWN INDICATION
     Dosage: 50 MG, UID/QD
     Route: 065
  11. NIASPAN [Concomitant]
     Indication: HYPERLIPIDAEMIA
     Dosage: 1000 MG, UID/QD
     Route: 065
  12. ASPIRIN [Concomitant]
     Indication: PRODUCT USED FOR UNKNOWN INDICATION
     Dosage: 81 MG, UID/QD
     Route: 065
  13. AMEVIVE [Suspect]
     Dosage: UNK
     Route: 030
     Dates: start: 20110101, end: 20110101
  14. DUONEB [Concomitant]
     Indication: CHRONIC OBSTRUCTIVE PULMONARY DISEASE
     Dosage: UNK
     Route: 065
  15. ALPRAZOLAM [Concomitant]
     Indication: ANXIETY
     Dosage: 1 MG, TID PRN
     Route: 065

REACTIONS (5)
  - CD4 LYMPHOCYTES DECREASED [None]
  - SEPSIS [None]
  - PLATELET COUNT DECREASED [None]
  - EXTERNAL EAR CELLULITIS [None]
  - URINARY TRACT INFECTION [None]
